FAERS Safety Report 6538540-1 (Version None)
Quarter: 2010Q1

REPORT INFORMATION
  Report Type: 
  Country: None (occurrence: None)
  Receive Date: 20100113
  Receipt Date: 20100113
  Transmission Date: 20100710
  Serious: Yes (Hospitalization)
  Sender: FDA-Public Use
  Company Number: None

PATIENT
  Sex: Male
  Weight: 74.8435 kg

DRUGS (15)
  1. AZACITIDINE 75MG [Suspect]
     Indication: ACUTE MYELOID LEUKAEMIA
     Dosage: AZACITIDINE 75MG/M2 QD S/C
     Route: 058
  2. LENALIDOMIDE 5 MG QD PO [Suspect]
     Dosage: LENALIDOMIDE 5 MG QD PO
     Route: 048
  3. SODIUM CHLORIDE [Concomitant]
  4. DEMECLOCYCILINE [Concomitant]
  5. DULOXETINE [Concomitant]
  6. FUROSEMID [Concomitant]
  7. LEVOTHYROXINE SODIUM [Concomitant]
  8. OLMESARTRAN [Concomitant]
  9. PANTROPOZOLE [Concomitant]
  10. ACETAMINOPHEN [Concomitant]
  11. POAMLODIPINE [Concomitant]
  12. DIPHENHYDRAMINE HCL [Concomitant]
  13. HYDROCODONE/ACET [Concomitant]
  14. INSULIN NOVOLOG [Concomitant]
  15. LORAZEPAN [Concomitant]

REACTIONS (10)
  - ALTERED STATE OF CONSCIOUSNESS [None]
  - ASTHENIA [None]
  - CONFUSIONAL STATE [None]
  - CONVULSION [None]
  - DYSARTHRIA [None]
  - FALL [None]
  - HYPONATRAEMIA [None]
  - SYNCOPE [None]
  - TRANSIENT ISCHAEMIC ATTACK [None]
  - UNRESPONSIVE TO STIMULI [None]
